FAERS Safety Report 8776410 (Version 4)
Quarter: 2013Q1

REPORT INFORMATION
  Report Type: Spontaneous
  Country: US (occurrence: US)
  Receive Date: 20120910
  Receipt Date: 20130110
  Transmission Date: 20140127
  Serious: Yes (Hospitalization)
  Sender: FDA-Public Use
  Company Number: US-GILEAD-2012-0060778

PATIENT
  Sex: Female

DRUGS (2)
  1. LETAIRIS [Suspect]
     Indication: PULMONARY HYPERTENSION
     Dosage: 5 MG, UNK
     Route: 048
     Dates: start: 20111004
  2. LETAIRIS [Suspect]
     Indication: UNEVALUABLE EVENT

REACTIONS (7)
  - Respiratory failure [Unknown]
  - Interstitial lung disease [Unknown]
  - Pulmonary arterial hypertension [Unknown]
  - Mechanical ventilation [Unknown]
  - Epistaxis [Unknown]
  - Nasal dryness [Unknown]
  - Asthenia [Unknown]
